FAERS Safety Report 5404669-4 (Version None)
Quarter: 2007Q3

REPORT INFORMATION
  Report Type: 
  Country: None (occurrence: None)
  Receive Date: 20070731
  Receipt Date: 20070717
  Transmission Date: 20080115
  Serious: Yes (Hospitalization)
  Sender: FDA-Public Use
  Company Number: 100#08#2007-02796

PATIENT
  Age: 51 Year
  Sex: Male

DRUGS (6)
  1. FLUOXETINE [Suspect]
     Indication: DEPRESSION
     Dosage: 20MG/DAY, TITRATED UP TO 40 MG/DAY WITHIN 3 WEEKS
  2. BUPROPION (BUPROPION) (BUPROPION) [Suspect]
     Indication: ASTHENIA
     Dosage: 150 M G/DAY
  3. BUPROPION (BUPROPION) (BUPROPION) [Suspect]
     Indication: FATIGUE
     Dosage: 150 M G/DAY
  4. BROMAZEPAM (BROMAZEPAM) (BROMAZEPAM) [Concomitant]
  5. ALPRAZOLAM [Concomitant]
  6. CLONAZEPAM [Concomitant]

REACTIONS (6)
  - DELIRIUM [None]
  - DISORIENTATION [None]
  - DISTURBANCE IN ATTENTION [None]
  - DRUG INTERACTION [None]
  - HALLUCINATION, AUDITORY [None]
  - MEMORY IMPAIRMENT [None]
